FAERS Safety Report 15362253 (Version 1)
Quarter: 2018Q3

REPORT INFORMATION
  Report Type: Spontaneous
  Country: US (occurrence: US)
  Receive Date: 20180907
  Receipt Date: 20180907
  Transmission Date: 20181010
  Serious: Yes (Other)
  Sender: FDA-Public Use
  Company Number: US-PFIZER INC-2018359898

PATIENT
  Age: 36 Year
  Sex: Male
  Weight: 84 kg

DRUGS (2)
  1. MOTRIN [Concomitant]
     Active Substance: IBUPROFEN
     Dosage: SIX TO EIGHT HUNDRED AT A TIME, ABOUT 3?4 TIMES A DAY
  2. VIAGRA [Suspect]
     Active Substance: SILDENAFIL CITRATE
     Indication: ERECTILE DYSFUNCTION
     Dosage: 4 DF, (200MG AND ANOTHER TWO AN HOUR LATER, TOOK FOUR ALTOGETHER)
     Route: 048
     Dates: start: 20180717

REACTIONS (5)
  - Penile haemorrhage [Unknown]
  - Penis disorder [Unknown]
  - Intentional product use issue [Unknown]
  - Penis injury [Unknown]
  - Erection increased [Not Recovered/Not Resolved]
